FAERS Safety Report 8160744-5 (Version None)
Quarter: 2012Q1

REPORT INFORMATION
  Report Type: 
  Country: None (occurrence: None)
  Receive Date: 20120223
  Receipt Date: 20120214
  Transmission Date: 20120608
  Serious: Yes (Hospitalization, Other)
  Sender: FDA-Public Use
  Company Number: PHHY2011FR115401

PATIENT
  Sex: Female
  Weight: 90 kg

DRUGS (9)
  1. TRAMADOL HCL [Concomitant]
     Dosage: 150 MG, UNK
  2. PACLITAXEL [Concomitant]
     Indication: BREAST CANCER METASTATIC
     Dosage: 125 MG, QW
     Dates: start: 20081027, end: 20091130
  3. LYRICA [Concomitant]
  4. LOSARTAN POTASSIUM AND HYDROCHLOROTHIAZIDE [Concomitant]
  5. BEVACIZUMAB [Concomitant]
     Indication: BREAST CANCER METASTATIC
     Dates: start: 20100830, end: 20100920
  6. ADRIAMYCIN PFS [Concomitant]
     Indication: BREAST CANCER METASTATIC
     Dates: start: 20101004, end: 20110131
  7. PACLITAXEL [Concomitant]
     Dates: start: 20100830, end: 20100920
  8. VINORELBINE TARTRATE [Concomitant]
     Indication: BREAST CANCER METASTATIC
     Dates: start: 20100308, end: 20100802
  9. ZOMETA [Suspect]
     Indication: METASTASES TO BONE
     Dosage: UNK UKN, UNK
     Dates: start: 20081001, end: 20101001

REACTIONS (5)
  - TOOTH LOSS [None]
  - BONE LESION [None]
  - OSTEONECROSIS OF JAW [None]
  - MASTICATION DISORDER [None]
  - OSTEITIS [None]
